FAERS Safety Report 19138313 (Version 1)
Quarter: 2021Q2

REPORT INFORMATION
  Report Type: Spontaneous
  Country: DE (occurrence: DE)
  Receive Date: 20210415
  Receipt Date: 20210415
  Transmission Date: 20210717
  Serious: Yes (Life-Threatening, Hospitalization, Other)
  Sender: FDA-Public Use
  Company Number: DE-AUROBINDO-AUR-APL-2021-015364

PATIENT
  Age: 68 Year
  Sex: Male

DRUGS (2)
  1. STILNOX [Interacting]
     Active Substance: ZOLPIDEM TARTRATE
     Indication: INSOMNIA
     Dosage: 10 MG
     Route: 065
     Dates: start: 20210304
  2. CETIRIZINE [Suspect]
     Active Substance: CETIRIZINE HYDROCHLORIDE
     Indication: PRURITUS
     Dosage: 10 MILLIGRAM, TWO TIMES A DAY (TWO TABLETS)
     Route: 065
     Dates: start: 20210304

REACTIONS (3)
  - Hypokinesia [Recovered/Resolved]
  - Drug interaction [Unknown]
  - Presyncope [Unknown]

NARRATIVE: CASE EVENT DATE: 20210304
